FAERS Safety Report 4336158-2 (Version None)
Quarter: 2004Q2

REPORT INFORMATION
  Report Type: 
  Country: None (occurrence: None)
  Receive Date: 20040407
  Receipt Date: 20040331
  Transmission Date: 20050107
  Serious: Yes (Other)
  Sender: FDA-Public Use
  Company Number: HQWYE298631MAR04

PATIENT
  Sex: Male

DRUGS (2)
  1. CORDARONE [Suspect]
     Indication: ATRIAL FIBRILLATION
     Dosage: SEE IMAGE/A FEW YEARS
     Route: 048
     Dates: end: 20030901
  2. CORDARONE [Suspect]
     Indication: ATRIAL FIBRILLATION
     Dosage: SEE IMAGE/A FEW YEARS
     Route: 048
     Dates: start: 20030901

REACTIONS (3)
  - COLLAPSE OF LUNG [None]
  - RIB FRACTURE [None]
  - SLEEP APNOEA SYNDROME [None]
